FAERS Safety Report 9845763 (Version 1)
Quarter: 2013Q4

REPORT INFORMATION
  Report Type: Spontaneous
  Country: US (occurrence: None)
  Receive Date: 20131219
  Receipt Date: 20131219
  Transmission Date: 20140711
  Serious: Yes (Hospitalization)
  Sender: FDA-Public Use
  Company Number: 163-20785-13013253

PATIENT
  Age: 76 Year
  Sex: Male
  Weight: 76.2 kg

DRUGS (3)
  1. THALOMID (THALIDOMIDE) (100 MILLIGRAM, CAPSULES) [Suspect]
     Indication: PLASMA CELL MYELOMA
     Route: 048
     Dates: start: 20120830, end: 20121203
  2. VELCADE (BORTEZOMIB) [Concomitant]
  3. DEX (DEXTROMETHORPHAN HYDROBROMIDE) [Concomitant]

REACTIONS (2)
  - Renal failure [None]
  - No therapeutic response [None]
